FAERS Safety Report 6861921-3 (Version None)
Quarter: 2010Q3

REPORT INFORMATION
  Report Type: 
  Country: None (occurrence: None)
  Receive Date: 20100721
  Receipt Date: 20100712
  Transmission Date: 20110219
  Serious: Yes (Other)
  Sender: FDA-Public Use
  Company Number: IN-ELI_LILLY_AND_COMPANY-IN201004003817

PATIENT
  Sex: Male

DRUGS (4)
  1. BYETTA [Suspect]
     Indication: DIABETES MELLITUS
     Dosage: 5 UG, 2/D
     Route: 058
     Dates: start: 20100201, end: 20100309
  2. BYETTA [Suspect]
     Dosage: 10 UG, 2/D
     Route: 058
     Dates: start: 20100310, end: 20100301
  3. BYETTA [Suspect]
     Dosage: 10 UG, UNK
     Dates: start: 20100510
  4. LANTUS [Concomitant]
     Indication: DIABETES MELLITUS
     Dosage: UNK, UNKNOWN
     Route: 065
     Dates: start: 20100201, end: 20100510

REACTIONS (4)
  - LIVER FUNCTION TEST ABNORMAL [None]
  - OFF LABEL USE [None]
  - PANCREATITIS [None]
  - VOMITING [None]
